FAERS Safety Report 20842130 (Version 20)
Quarter: 2023Q4

REPORT INFORMATION
  Report Type: Other
  Country: AT (occurrence: AT)
  Receive Date: 20220518
  Receipt Date: 20231125
  Transmission Date: 20240110
  Serious: Yes (Hospitalization)
  Sender: FDA-Public Use
  Company Number: AT-ROCHE-3095919

PATIENT
  Age: 45 Year
  Sex: Female
  Weight: 46 kg

DRUGS (39)
  1. ATEZOLIZUMAB [Suspect]
     Active Substance: ATEZOLIZUMAB
     Indication: HER2 positive breast cancer
     Route: 042
     Dates: start: 20220218, end: 20220301
  2. ATEZOLIZUMAB [Suspect]
     Active Substance: ATEZOLIZUMAB
     Route: 042
     Dates: start: 20220118, end: 20220301
  3. ATEZOLIZUMAB [Suspect]
     Active Substance: ATEZOLIZUMAB
     Route: 042
     Dates: start: 20210811, end: 20210927
  4. KADCYLA [Suspect]
     Active Substance: ADO-TRASTUZUMAB EMTANSINE
     Indication: HER2 positive breast cancer
     Dosage: MOST RECENT DOSE PRIOR TO THE EVENT: 23/MAY/2018, 14/FEB/2020
     Route: 042
     Dates: start: 20180523
  5. XELODA [Suspect]
     Active Substance: CAPECITABINE
     Indication: HER2 positive breast cancer
     Dosage: MOST RECENT DOSE PRIOR TO THE EVENT: 09/NOV/2021, 10/NOV/2021
     Route: 048
     Dates: start: 20211014
  6. ABRAXANE [Suspect]
     Active Substance: PACLITAXEL
     Indication: HER2 positive breast cancer
     Dosage: MOST RECENT DOSE: 27/SEP/2021
     Route: 042
     Dates: start: 20210811
  7. ABRAXANE [Suspect]
     Active Substance: PACLITAXEL
     Route: 042
     Dates: start: 20210927
  8. ABRAXANE [Suspect]
     Active Substance: PACLITAXEL
     Route: 042
     Dates: start: 20210920
  9. ABRAXANE [Suspect]
     Active Substance: PACLITAXEL
     Dosage: MOST RECENT DOSE RECEIVED ON 01/MAR/2022
     Route: 042
     Dates: start: 20220118
  10. SACITUZUMAB GOVITECAN [Suspect]
     Active Substance: SACITUZUMAB GOVITECAN
     Indication: HER2 positive breast cancer
     Route: 042
     Dates: start: 20220315
  11. SACITUZUMAB GOVITECAN [Suspect]
     Active Substance: SACITUZUMAB GOVITECAN
     Dosage: MOST RECENT DOSE PRIOR TO THE EVENT: 25/AUG/2021
     Route: 042
     Dates: start: 20210811, end: 20210825
  12. POLYETHYLENE GLYCOL 3350\POTASSIUM CHLORIDE\SODIUM BICARBONATE\SODIUM [Concomitant]
     Active Substance: POLYETHYLENE GLYCOL 3350\POTASSIUM CHLORIDE\SODIUM BICARBONATE\SODIUM CHLORIDE
     Indication: Constipation
     Dates: start: 20210614
  13. PASPERTIN [Concomitant]
     Dates: start: 20210811
  14. ZOFRAN [Concomitant]
     Active Substance: ONDANSETRON HYDROCHLORIDE
     Dates: start: 20210811
  15. XARELTO [Concomitant]
     Active Substance: RIVAROXABAN
     Indication: Venous thrombosis
     Dates: start: 20210818
  16. XARELTO [Concomitant]
     Active Substance: RIVAROXABAN
     Indication: Subclavian vein thrombosis
  17. XARELTO [Concomitant]
     Active Substance: RIVAROXABAN
     Indication: Axillary vein thrombosis
  18. DIPYRONE [Concomitant]
     Active Substance: DIPYRONE
     Dates: start: 20210907
  19. MORPHINE [Concomitant]
     Active Substance: MORPHINE
     Indication: Venous thrombosis
     Dosage: ONGOING = CHECKED
     Dates: start: 20210912
  20. MORPHINE [Concomitant]
     Active Substance: MORPHINE
     Indication: Subclavian vein thrombosis
  21. MORPHINE [Concomitant]
     Active Substance: MORPHINE
     Indication: Axillary vein thrombosis
  22. LASIX [Concomitant]
     Active Substance: FUROSEMIDE
     Dates: start: 20210913
  23. NEBIVOLOL [Concomitant]
     Active Substance: NEBIVOLOL
     Indication: Ejection fraction decreased
     Dates: start: 20211005
  24. LISINOPRIL [Concomitant]
     Active Substance: LISINOPRIL
     Indication: Ejection fraction decreased
     Dosage: ONGOING = NOT CHECKED
     Dates: start: 20211006, end: 20230218
  25. LEVOTHYROXINE SODIUM [Concomitant]
     Active Substance: LEVOTHYROXINE SODIUM
     Indication: Hypothyroidism
     Dates: start: 20211128
  26. ONDANSETRON [Concomitant]
     Active Substance: ONDANSETRON
     Dosage: ONGOING = NOT CHECKED
     Dates: start: 20220118, end: 20220426
  27. DICLOFENAC SODIUM\ORPHENADRINE CITRATE [Concomitant]
     Active Substance: DICLOFENAC SODIUM\ORPHENADRINE CITRATE
     Indication: Musculoskeletal chest pain
     Dosage: ONGOING = NOT CHECKED
     Dates: start: 20220201, end: 20220201
  28. DEXAMETHASONE [Concomitant]
     Active Substance: DEXAMETHASONE
     Dates: start: 20220315
  29. DIPHENHYDRAMINE [Concomitant]
     Active Substance: DIPHENHYDRAMINE
     Dates: start: 20220315
  30. ACETAMINOPHEN [Concomitant]
     Active Substance: ACETAMINOPHEN
     Dates: start: 20220315
  31. SPIRONOLACTONE [Concomitant]
     Active Substance: SPIRONOLACTONE
     Dosage: ONGOING = NOT CHECKED
     Dates: start: 20230128
  32. ENOXAPARIN SODIUM [Concomitant]
     Active Substance: ENOXAPARIN SODIUM
  33. LISINOPRIL [Concomitant]
     Active Substance: LISINOPRIL
     Indication: Ejection fraction decreased
     Dosage: ONGOING = CHECKED
     Dates: start: 20200815
  34. LISINOPRIL [Concomitant]
     Active Substance: LISINOPRIL
     Dosage: ONGOING = CHECKED
     Dates: start: 20200525
  35. FRAGMIN [Concomitant]
     Active Substance: DALTEPARIN SODIUM
  36. AVELOX [Concomitant]
     Active Substance: MOXIFLOXACIN HYDROCHLORIDE
     Dosage: ONGOING = NOT CHECKED
     Dates: start: 20230210, end: 20230216
  37. FENTANYL [Concomitant]
     Active Substance: FENTANYL\FENTANYL CITRATE
     Indication: Pain in extremity
     Dates: start: 20220426
  38. PREGABALIN [Concomitant]
     Active Substance: PREGABALIN
     Indication: Pain in extremity
     Dates: start: 20220508
  39. MORPHINE [Concomitant]
     Active Substance: MORPHINE
     Indication: Venous thrombosis
     Dates: start: 20210912

REACTIONS (2)
  - Catheter site inflammation [Recovered/Resolved]
  - Rash [Unknown]

NARRATIVE: CASE EVENT DATE: 20220217
